FAERS Safety Report 19685407 (Version 1)
Quarter: 2021Q3

REPORT INFORMATION
  Report Type: Spontaneous
  Country: US (occurrence: US)
  Receive Date: 20210811
  Receipt Date: 20210811
  Transmission Date: 20211014
  Serious: No
  Sender: FDA-Public Use
  Company Number: None

PATIENT
  Sex: Female

DRUGS (1)
  1. HUMIRA [Suspect]
     Active Substance: ADALIMUMAB
     Indication: COLITIS ULCERATIVE
     Route: 058
     Dates: start: 20210630

REACTIONS (6)
  - Injection site warmth [None]
  - Vision blurred [None]
  - Injection site erythema [None]
  - Dizziness [None]
  - Injection site swelling [None]
  - Injection site pruritus [None]
